FAERS Safety Report 21388510 (Version 1)
Quarter: 2022Q3

REPORT INFORMATION
  Report Type: Other
  Country: IL (occurrence: None)
  Receive Date: 20220928
  Receipt Date: 20220928
  Transmission Date: 20221027
  Serious: Yes (Other)
  Sender: FDA-Public Use
  Company Number: IL-ROCHE-3185492

PATIENT
  Age: 50 Year
  Sex: Male

DRUGS (1)
  1. ALECENSA [Suspect]
     Active Substance: ALECTINIB HYDROCHLORIDE
     Indication: Non-small cell lung cancer
     Route: 048
     Dates: start: 20191201

REACTIONS (3)
  - Deafness [Not Recovered/Not Resolved]
  - Constipation [Unknown]
  - Migraine [Unknown]

NARRATIVE: CASE EVENT DATE: 20220921
